FAERS Safety Report 24058813 (Version 1)
Quarter: 2024Q3

REPORT INFORMATION
  Report Type: Spontaneous
  Country: DE (occurrence: DE)
  Receive Date: 20240708
  Receipt Date: 20240708
  Transmission Date: 20241016
  Serious: Yes (Hospitalization, Other)
  Sender: AUROBINDO
  Company Number: DE-009507513-2205DEU002166

PATIENT
  Sex: Female
  Weight: 90 kg

DRUGS (3)
  1. PEMETREXED [Suspect]
     Active Substance: PEMETREXED
     Indication: Non-small cell lung cancer
     Dosage: 772.5 MILLIGRAM
     Route: 065
     Dates: start: 20201228, end: 20201228
  2. CARBOPLATIN [Suspect]
     Active Substance: CARBOPLATIN
     Indication: Non-small cell lung cancer
     Dosage: 432.5 MILLIGRAM
     Route: 065
     Dates: start: 20201228, end: 20201228
  3. PEMBROLIZUMAB [Suspect]
     Active Substance: PEMBROLIZUMAB
     Indication: Non-small cell lung cancer
     Dosage: 200 MILLIGRAM
     Route: 065
     Dates: start: 20201015, end: 20210730

REACTIONS (2)
  - Arthralgia [Recovering/Resolving]
  - Autoimmune pancreatitis [Recovered/Resolved]

NARRATIVE: CASE EVENT DATE: 20210811
